FAERS Safety Report 22182162 (Version 1)
Quarter: 2023Q2

REPORT INFORMATION
  Report Type: Spontaneous
  Country: US (occurrence: None)
  Receive Date: 20230405
  Receipt Date: 20230405
  Transmission Date: 20230721
  Serious: Yes (Disabling, Other)
  Sender: FDA-Public Use
  Company Number: None

PATIENT
  Age: 59 Year
  Sex: Female
  Weight: 90.26 kg

DRUGS (7)
  1. MELOXICAM [Suspect]
     Active Substance: MELOXICAM
     Indication: Sciatica
     Route: 048
     Dates: start: 2023, end: 2023
  2. CHLORZOXAZONE [Suspect]
     Active Substance: CHLORZOXAZONE
  3. LEVOTHYROXINE [Concomitant]
     Active Substance: LEVOTHYROXINE
  4. PROZAC [Concomitant]
     Active Substance: FLUOXETINE HYDROCHLORIDE
  5. CLONAZEPAM [Concomitant]
     Active Substance: CLONAZEPAM
  6. ATORVASTATIN [Concomitant]
     Active Substance: ATORVASTATIN
  7. Vitamin C w/D [Concomitant]

REACTIONS (7)
  - Rash [None]
  - Blood pressure increased [None]
  - Drug ineffective [None]
  - Hypoaesthesia [None]
  - Pain in extremity [None]
  - Gait disturbance [None]
  - Refusal of treatment by patient [None]

NARRATIVE: CASE EVENT DATE: 20230225
